FAERS Safety Report 16538946 (Version 1)
Quarter: 2019Q3

REPORT INFORMATION
  Report Type: Spontaneous
  Country: US (occurrence: US)
  Receive Date: 20190708
  Receipt Date: 20190708
  Transmission Date: 20191004
  Serious: Yes (Hospitalization, Other)
  Sender: FDA-Public Use
  Company Number: US-SHILPA MEDICARE LIMITED-SML-US-2019-00146

PATIENT
  Age: 67 Year
  Sex: Female

DRUGS (3)
  1. CARBOPLATIN. [Concomitant]
     Active Substance: CARBOPLATIN
     Indication: ADENOCARCINOMA GASTRIC
     Dosage: 03 PER CYCLE
     Route: 065
  2. CAPECITABINE, UNKNOWN [Suspect]
     Active Substance: CAPECITABINE
     Indication: ADENOCARCINOMA GASTRIC
     Dosage: 3 PER CYCLE
     Route: 065
  3. FOLATE [Suspect]
     Active Substance: FOLATE SODIUM
     Indication: PRODUCT USED FOR UNKNOWN INDICATION
     Dosage: 01 PER DAY
     Route: 065

REACTIONS (10)
  - Hepatic steatosis [Unknown]
  - Muscular weakness [Unknown]
  - Hyperammonaemia [Recovering/Resolving]
  - Delirium [Unknown]
  - Ataxia [Unknown]
  - Self-medication [Unknown]
  - Weight decreased [Unknown]
  - Encephalopathy [Recovering/Resolving]
  - Urinary tract infection [Unknown]
  - Confusional state [Recovered/Resolved]
